FAERS Safety Report 6244903-4 (Version None)
Quarter: 2009Q2

REPORT INFORMATION
  Report Type: 
  Country: None (occurrence: None)
  Receive Date: 20090625
  Receipt Date: 20090612
  Transmission Date: 20091009
  Serious: No
  Sender: FDA-Public Use
  Company Number: PHHY2009JP07549

PATIENT
  Age: 65 Year
  Sex: Female

DRUGS (5)
  1. DIOVAN [Suspect]
     Indication: HYPERTENSION
     Dosage: 80 MG,DAILY
     Route: 048
     Dates: start: 20071001
  2. DIOVAN [Suspect]
     Dosage: 40 MG, DAILY
     Route: 048
     Dates: start: 20080501, end: 20090223
  3. BASEN [Concomitant]
     Dosage: UNK
     Route: 048
     Dates: start: 20041001
  4. ATELEC [Concomitant]
     Dosage: UNK
     Route: 048
     Dates: start: 20090223, end: 20090325
  5. BLOPRESS [Concomitant]
     Dosage: 8 MG
     Route: 048
     Dates: start: 20090326

REACTIONS (1)
  - RAYNAUD'S PHENOMENON [None]
